FAERS Safety Report 9568917 (Version 1)
Quarter: 2013Q3

REPORT INFORMATION
  Report Type: Spontaneous
  Country: US (occurrence: US)
  Receive Date: 20130930
  Receipt Date: 20130930
  Transmission Date: 20140515
  Serious: No
  Sender: FDA-Public Use
  Company Number: US-AMGEN-USASP2013060743

PATIENT
  Age: 67 Year
  Sex: Female
  Weight: 104.76 kg

DRUGS (12)
  1. ENBREL [Suspect]
     Indication: PRODUCT USED FOR UNKNOWN INDICATION
     Dosage: 50 MG, 2 TIMES/WK
     Route: 058
  2. VICODIN [Concomitant]
     Dosage: 5-500 MG
  3. NAPROXEN [Concomitant]
     Dosage: 250 MG, UNK
  4. LISINOPRIL [Concomitant]
     Dosage: 5 MG, UNK
  5. ASA [Concomitant]
     Dosage: 81 MG, UNK, LOW DOSE EC
  6. VITAMIN D                          /00107901/ [Concomitant]
     Dosage: 400 UNIT, UNK
  7. COLACE [Concomitant]
     Dosage: 50 MG, UNK
  8. CALCIUM [Concomitant]
     Dosage: UNK
  9. TYLENOL PM [Concomitant]
     Dosage: UNK 25-500 MG
  10. GLUCOSAMINE + CHONDROITIN          /01430901/ [Concomitant]
     Dosage: UNK
  11. METHOTREXATE [Concomitant]
     Dosage: 1 GM, UNK
  12. MULTI [Concomitant]
     Dosage: UNK

REACTIONS (1)
  - Injection site bruising [Unknown]
